FAERS Safety Report 8989333 (Version 2)
Quarter: 2013Q1

REPORT INFORMATION
  Report Type: Spontaneous
  Country: IT (occurrence: IT)
  Receive Date: 20121228
  Receipt Date: 20130203
  Transmission Date: 20140127
  Serious: Yes (Other)
  Sender: FDA-Public Use
  Company Number: IT-ABBOTT-12P-083-1025462-00

PATIENT
  Age: 60 Year
  Sex: Male

DRUGS (14)
  1. FENOFIBRATE [Suspect]
     Indication: DYSLIPIDAEMIA
     Route: 048
     Dates: start: 20121024, end: 20121024
  2. HEPARIN SODIUM [Concomitant]
     Indication: PRODUCT USED FOR UNKNOWN INDICATION
     Route: 042
     Dates: start: 20121024, end: 20121024
  3. HEPARIN SODIUM [Concomitant]
     Route: 042
     Dates: start: 20121018, end: 20121022
  4. HEPARIN SODIUM [Concomitant]
     Route: 042
     Dates: start: 20121023, end: 20121023
  5. MELFALAN [Concomitant]
     Indication: PRODUCT USED FOR UNKNOWN INDICATION
     Dosage: 240 MG DAILY
     Route: 042
     Dates: start: 20121023, end: 20121023
  6. ETOPOSIDE [Concomitant]
     Indication: PRODUCT USED FOR UNKNOWN INDICATION
     Dosage: 340 MG DAILY
     Route: 042
     Dates: start: 20121019, end: 20121022
  7. ACICLOVIR [Concomitant]
     Indication: PRODUCT USED FOR UNKNOWN INDICATION
     Dosage: 500 MG DAILY
     Route: 042
     Dates: start: 20121019, end: 20121107
  8. CARMUSTINA [Concomitant]
     Indication: PRODUCT USED FOR UNKNOWN INDICATION
     Dosage: 500 MG DAILY
     Route: 042
     Dates: start: 20121018, end: 20121018
  9. LOBIVON [Concomitant]
     Indication: PRODUCT USED FOR UNKNOWN INDICATION
     Dosage: FORM STRENGTH: 5 MG
     Route: 048
  10. ZOFRAN [Concomitant]
     Indication: PROPHYLAXIS OF NAUSEA AND VOMITING
     Route: 042
     Dates: start: 20121018, end: 20121024
  11. ZOFRAN [Concomitant]
     Indication: PROPHYLAXIS OF NAUSEA AND VOMITING
  12. PRITORPLUS [Concomitant]
     Indication: PRODUCT USED FOR UNKNOWN INDICATION
     Route: 048
  13. ESAPENT [Concomitant]
     Indication: PRODUCT USED FOR UNKNOWN INDICATION
     Dosage: 1000 MG DAILY
     Route: 048
  14. NORVASC [Concomitant]
     Indication: PRODUCT USED FOR UNKNOWN INDICATION
     Dosage: FORM STRENGTH: 5 MG
     Route: 048

REACTIONS (1)
  - Amylase increased [Recovered/Resolved]
